FAERS Safety Report 10049497 (Version 1)
Quarter: 2014Q1

REPORT INFORMATION
  Report Type: Spontaneous
  Country: US (occurrence: None)
  Receive Date: 20140331
  Receipt Date: 20140331
  Transmission Date: 20141002
  Serious: Yes (Death, Life-Threatening, Hospitalization)
  Sender: FDA-Public Use
  Company Number: None

PATIENT
  Age: 59 Year
  Sex: Male
  Weight: 86.18 kg

DRUGS (2)
  1. AXIRON [Suspect]
     Indication: BLOOD TESTOSTERONE DECREASED
     Dates: start: 201201, end: 201306
  2. AXIRON [Suspect]
     Indication: FATIGUE
     Dates: start: 201201, end: 201306

REACTIONS (3)
  - Convulsion [None]
  - Myocardial infarction [None]
  - Cardiac arrest [None]
